FAERS Safety Report 7767347-2 (Version None)
Quarter: 2011Q3

REPORT INFORMATION
  Report Type: 
  Country: None (occurrence: None)
  Receive Date: 20110922
  Receipt Date: 20110914
  Transmission Date: 20111222
  Serious: Yes (Other)
  Sender: FDA-Public Use
  Company Number: JP-B.I. PHARMACEUTICALS,INC./RIDGEFIELD-2010-DE-00634GD

PATIENT
  Age: 80 Year
  Sex: Female

DRUGS (6)
  1. SUCRALFATE [Suspect]
  2. VOLTAREN [Suspect]
     Route: 054
  3. DILTIAZEM HCL [Suspect]
  4. ACETAMINOPHEN [Suspect]
     Indication: PYREXIA
  5. CEFDINIR [Suspect]
  6. MICARDIS [Suspect]

REACTIONS (3)
  - ACUTE GENERALISED EXANTHEMATOUS PUSTULOSIS [None]
  - PYREXIA [None]
  - ERYTHEMA MULTIFORME [None]
